FAERS Safety Report 11862960 (Version 1)
Quarter: 2015Q4

REPORT INFORMATION
  Report Type: Report from Study
  Country: JP (occurrence: JP)
  Receive Date: 20151223
  Receipt Date: 20151223
  Transmission Date: 20160305
  Serious: Yes (Disabling, Other)
  Sender: FDA-Public Use
  Company Number: JP-009507513-1512JPN010765

PATIENT
  Age: 7 Month
  Sex: Female

DRUGS (3)
  1. DIAZOXIDE [Suspect]
     Active Substance: DIAZOXIDE
     Dosage: 2.6 MG, TID
     Route: 048
     Dates: start: 20150304, end: 20150309
  2. DIAZOXIDE [Suspect]
     Active Substance: DIAZOXIDE
     Indication: HYPOGLYCAEMIA
     Dosage: 5 MG, TID
     Route: 048
     Dates: start: 20150220, end: 20150303
  3. KAYTWO [Concomitant]
     Active Substance: MENATETRENONE
     Indication: PROPHYLAXIS
     Dosage: 2 MG, DIVIDED DOSE FREQUENCY UNKNOWN
     Route: 048
     Dates: start: 20150308

REACTIONS (1)
  - Motor developmental delay [Not Recovered/Not Resolved]

NARRATIVE: CASE EVENT DATE: 20150801
